FAERS Safety Report 8079166-0 (Version None)
Quarter: 2012Q1

REPORT INFORMATION
  Report Type: 
  Country: None (occurrence: None)
  Receive Date: 20120128
  Receipt Date: 20110801
  Transmission Date: 20120608
  Serious: No
  Sender: FDA-Public Use
  Company Number: US-ABBOTT-11P-163-0843208-00

PATIENT
  Age: 47 Year
  Sex: Female

DRUGS (15)
  1. SUDAFED 12 HOUR [Concomitant]
     Indication: SINUS DISORDER
  2. HUMIRA [Suspect]
     Indication: CROHN'S DISEASE
  3. OMEPRAZOLE [Concomitant]
     Indication: GASTROOESOPHAGEAL REFLUX DISEASE
  4. HUMIRA [Suspect]
     Indication: UVEITIS
  5. HUMIRA [Suspect]
     Indication: SARCOIDOSIS
  6. HUMIRA [Suspect]
     Indication: COLITIS ULCERATIVE
     Dates: start: 20110401
  7. INDOCIN [Concomitant]
     Indication: RHEUMATOID ARTHRITIS
  8. CALCIUM W/C CITRATE [Concomitant]
     Indication: MINERAL SUPPLEMENTATION
  9. VITAMIN B-12 [Concomitant]
     Indication: VITAMIN SUPPLEMENTATION
  10. HUMIRA [Suspect]
     Indication: ANKYLOSING SPONDYLITIS
  11. VITAMIN D [Concomitant]
     Indication: VITAMIN SUPPLEMENTATION
  12. MAGNESIUM [Concomitant]
     Indication: MINERAL SUPPLEMENTATION
  13. HUMIRA [Suspect]
     Indication: RHEUMATOID ARTHRITIS
  14. XANAX [Concomitant]
     Indication: ANXIETY
  15. NORCO [Concomitant]
     Indication: BREAKTHROUGH PAIN
     Dosage: 10/325MG

REACTIONS (4)
  - ARTHRALGIA [None]
  - COUGH [None]
  - RHEUMATOID ARTHRITIS [None]
  - OEDEMA PERIPHERAL [None]
